FAERS Safety Report 8603366-1 (Version None)
Quarter: 2012Q3

REPORT INFORMATION
  Report Type: 
  Country: None (occurrence: None)
  Receive Date: 20120806
  Receipt Date: 20120726
  Transmission Date: 20120928
  Serious: Yes (Hospitalization)
  Sender: FDA-Public Use
  Company Number: KAD201207-000395

PATIENT
  Age: 56 Year
  Sex: Female

DRUGS (2)
  1. LETROZOLE [Suspect]
     Indication: BREAST CANCER
     Dates: start: 20110101, end: 20111115
  2. ANASTROZOLE [Suspect]
     Indication: BREAST CANCER
     Dates: start: 20110820, end: 20110101

REACTIONS (18)
  - DISTURBANCE IN ATTENTION [None]
  - SUICIDAL IDEATION [None]
  - PAIN [None]
  - IRRITABILITY [None]
  - SOCIAL AVOIDANT BEHAVIOUR [None]
  - ASTHENIA [None]
  - STRESS [None]
  - MOOD ALTERED [None]
  - DEPRESSION [None]
  - ANGER [None]
  - ANXIETY [None]
  - MEMORY IMPAIRMENT [None]
  - FEELING GUILTY [None]
  - FEELING OF DESPAIR [None]
  - ANHEDONIA [None]
  - DECREASED APPETITE [None]
  - TEARFULNESS [None]
  - SLEEP DISORDER [None]
